FAERS Safety Report 14110721 (Version 1)
Quarter: 2017Q4

REPORT INFORMATION
  Report Type: Spontaneous
  Country: US (occurrence: None)
  Receive Date: 20171020
  Receipt Date: 20171020
  Transmission Date: 20180321
  Serious: No
  Sender: FDA-Public Use
  Company Number: None

PATIENT
  Age: 57 Year
  Sex: Male
  Weight: 99.79 kg

DRUGS (8)
  1. LOSARTAN. [Concomitant]
     Active Substance: LOSARTAN
  2. KEPPRA [Concomitant]
     Active Substance: LEVETIRACETAM
  3. FISH OIL [Concomitant]
     Active Substance: FISH OIL
  4. AMPYRA [Concomitant]
     Active Substance: DALFAMPRIDINE
  5. BIOTIN [Concomitant]
     Active Substance: BIOTIN
  6. AMLODIPINE [Concomitant]
     Active Substance: AMLODIPINE BESYLATE
  7. RITUXAN [Suspect]
     Active Substance: RITUXIMAB
     Indication: MULTIPLE SCLEROSIS
     Dosage: IV Q 3 MONTHS
     Route: 042
     Dates: end: 20170629
  8. VITAMIN D3 [Concomitant]
     Active Substance: CHOLECALCIFEROL

REACTIONS (3)
  - Fall [None]
  - Limb injury [None]
  - Sarcoma [None]

NARRATIVE: CASE EVENT DATE: 20170108
